FAERS Safety Report 13366763 (Version 1)
Quarter: 2017Q1

REPORT INFORMATION
  Report Type: Spontaneous
  Country: US (occurrence: US)
  Receive Date: 20170323
  Receipt Date: 20170323
  Transmission Date: 20170429
  Serious: Yes (Other)
  Sender: FDA-Public Use
  Company Number: None

PATIENT
  Age: 72 Year
  Sex: Female
  Weight: 77.4 kg

DRUGS (8)
  1. TIZANIDINE. [Concomitant]
     Active Substance: TIZANIDINE
  2. CIPROFLOXACIN. [Suspect]
     Active Substance: CIPROFLOXACIN
     Indication: GASTRITIS
     Route: 048
     Dates: start: 20170317, end: 20170320
  3. TRAMADOL. [Concomitant]
     Active Substance: TRAMADOL
  4. BLOOD PRESSURE MED [Concomitant]
  5. TRAZODONE [Concomitant]
     Active Substance: TRAZODONE HYDROCHLORIDE
  6. CIPROFLOXACIN. [Suspect]
     Active Substance: CIPROFLOXACIN
     Indication: BRONCHITIS
     Route: 048
     Dates: start: 20170317, end: 20170320
  7. MIRAPEX [Concomitant]
     Active Substance: PRAMIPEXOLE DIHYDROCHLORIDE
  8. OXYBUTYNIN [Concomitant]
     Active Substance: OXYBUTYNIN

REACTIONS (8)
  - Pain in extremity [None]
  - Abdominal discomfort [None]
  - Depressed mood [None]
  - Chromaturia [None]
  - Middle insomnia [None]
  - Musculoskeletal pain [None]
  - Hypophagia [None]
  - Body temperature increased [None]

NARRATIVE: CASE EVENT DATE: 20170318
